FAERS Safety Report 10021396 (Version 2)
Quarter: 2014Q1

REPORT INFORMATION
  Report Type: Report from Study
  Country: US (occurrence: US)
  Receive Date: 20140319
  Receipt Date: 20140325
  Transmission Date: 20141002
  Serious: Yes (Life-Threatening, Hospitalization)
  Sender: FDA-Public Use
  Company Number: US-009507513-1403USA008729

PATIENT
  Age: 35 Year
  Sex: Female
  Weight: 82.8 kg

DRUGS (1)
  1. VORINOSTAT [Suspect]
     Indication: ACUTE MYELOID LEUKAEMIA
     Dosage: 500 MG, TID (DAYS 1-3)
     Route: 048
     Dates: start: 20140314, end: 20140316

REACTIONS (4)
  - Cardiac arrest [Recovering/Resolving]
  - Hypotension [Recovering/Resolving]
  - Hypoxia [Recovering/Resolving]
  - Ejection fraction decreased [Recovering/Resolving]
